FAERS Safety Report 26193978 (Version 1)
Quarter: 2025Q4

REPORT INFORMATION
  Report Type: Spontaneous
  Country: US (occurrence: US)
  Receive Date: 20251224
  Receipt Date: 20251224
  Transmission Date: 20260117
  Serious: Yes (Other)
  Sender: STRIDES
  Company Number: US-STRIDES ARCOLAB LIMITED-2025SP003759

PATIENT
  Sex: Male

DRUGS (12)
  1. ETOPOSIDE [Suspect]
     Active Substance: ETOPOSIDE
     Indication: Medulloblastoma
     Dosage: UNK
     Route: 065
  2. ETOPOSIDE [Suspect]
     Active Substance: ETOPOSIDE
     Indication: Medulloblastoma recurrent
     Dosage: 50 MG/M2/DOSE ON DAY 1-7 IN 28 DAYS CYCLE
     Route: 048
  3. ETOPOSIDE [Suspect]
     Active Substance: ETOPOSIDE
     Dosage: ONE CYCLE
     Route: 065
  4. METHOTREXATE [Suspect]
     Active Substance: METHOTREXATE
     Indication: Medulloblastoma
     Dosage: UNK
     Route: 065
  5. IRINOTECAN [Suspect]
     Active Substance: IRINOTECAN
     Indication: Medulloblastoma recurrent
     Dosage: 125 MG/M2/DOSE ON DAY 1 AND 8 IN 28 DAYS CYCLE
     Route: 042
  6. CYCLOPHOSPHAMIDE [Suspect]
     Active Substance: CYCLOPHOSPHAMIDE
     Indication: Medulloblastoma recurrent
     Dosage: 1500 MG/M2/DOSE ON DAY 1 AND 2 IN 28 DAYS CYCLE
     Route: 042
  7. CYCLOPHOSPHAMIDE [Suspect]
     Active Substance: CYCLOPHOSPHAMIDE
     Dosage: UNK
     Route: 065
  8. TEMOZOLOMIDE [Suspect]
     Active Substance: TEMOZOLOMIDE
     Indication: Medulloblastoma recurrent
     Dosage: 150 MG/M2/DOSE ON DAY 1-5 IN 28 DAYS CYCLE
     Route: 048
  9. CISPLATIN [Concomitant]
     Active Substance: CISPLATIN
     Indication: Medulloblastoma
     Dosage: UNK
     Route: 065
  10. VINCRISTINE [Concomitant]
     Active Substance: VINCRISTINE
     Indication: Medulloblastoma
     Dosage: UNK
     Route: 065
  11. THIOTEPA [Concomitant]
     Active Substance: THIOTEPA
     Indication: Medulloblastoma
     Dosage: UNK, CYCLICAL
     Route: 065
  12. CARBOPLATIN [Concomitant]
     Active Substance: CARBOPLATIN
     Indication: Medulloblastoma
     Dosage: ONE CYCLE
     Route: 065

REACTIONS (4)
  - Myelosuppression [Unknown]
  - Febrile neutropenia [Unknown]
  - Infection [Unknown]
  - Off label use [Unknown]
